FAERS Safety Report 7220410-7 (Version None)
Quarter: 2011Q1

REPORT INFORMATION
  Report Type: 
  Country: None (occurrence: None)
  Receive Date: 20110111
  Receipt Date: 20110104
  Transmission Date: 20110831
  Serious: Yes (Hospitalization, Other)
  Sender: FDA-Public Use
  Company Number: US-ABBOTT-11P-163-0695330-00

PATIENT
  Sex: Female
  Weight: 70.37 kg

DRUGS (5)
  1. HUMIRA [Suspect]
     Indication: PSORIATIC ARTHROPATHY
  2. AMBIEN [Concomitant]
     Indication: INSOMNIA
  3. HUMIRA [Suspect]
     Indication: PSORIASIS
     Dates: start: 20070101
  4. XANAX [Concomitant]
     Indication: ANXIETY
  5. EFFEXOR [Concomitant]
     Indication: ANXIETY

REACTIONS (3)
  - CYSTITIS [None]
  - CYST [None]
  - FAECALOMA [None]
